FAERS Safety Report 24969236 (Version 1)
Quarter: 2025Q1

REPORT INFORMATION
  Report Type: Report from Study
  Country: CA (occurrence: CA)
  Receive Date: 20250214
  Receipt Date: 20250214
  Transmission Date: 20250408
  Serious: Yes (Other)
  Sender: MERZ
  Company Number: CA-MERZ PHARMACEUTICALS, LLC-2022BI01172058

PATIENT

DRUGS (8)
  1. DALFAMPRIDINE [Suspect]
     Active Substance: DALFAMPRIDINE
     Indication: Secondary progressive multiple sclerosis
     Dosage: BID (TWICE DAILY)
     Route: 048
     Dates: start: 20221123, end: 20240630
  2. DALFAMPRIDINE [Suspect]
     Active Substance: DALFAMPRIDINE
     Dosage: ALSO REPORTED TO BE STARTED ON 10-JUL-2024
     Route: 048
     Dates: start: 20240707
  3. DALFAMPRIDINE [Suspect]
     Active Substance: DALFAMPRIDINE
     Dosage: 10 MILLIGRAM, QD
     Route: 048
     Dates: start: 20221123
  4. VIT D [VITAMIN D NOS] [Concomitant]
     Indication: Product used for unknown indication
     Route: 065
  5. FINGOLIMOD [Concomitant]
     Active Substance: FINGOLIMOD
     Indication: Product used for unknown indication
     Route: 065
  6. SYNTHROID [Concomitant]
     Active Substance: LEVOTHYROXINE SODIUM
     Indication: Product used for unknown indication
     Route: 065
  7. CITALOPRAM [Concomitant]
     Active Substance: CITALOPRAM
     Indication: Product used for unknown indication
     Route: 065
  8. BACLOFEN [Concomitant]
     Active Substance: BACLOFEN
     Indication: Product used for unknown indication
     Route: 065

REACTIONS (19)
  - Angina pectoris [Recovered/Resolved]
  - Mental disorder [Unknown]
  - Diarrhoea [Unknown]
  - Hypoaesthesia [Recovered/Resolved]
  - Hypoaesthesia oral [Recovered/Resolved]
  - Respiratory rate increased [Recovered/Resolved]
  - Hot flush [Recovered/Resolved]
  - Palpitations [Unknown]
  - Chest discomfort [Recovered/Resolved]
  - Gait disturbance [Not Recovered/Not Resolved]
  - Balance disorder [Not Recovered/Not Resolved]
  - Fatigue [Not Recovered/Not Resolved]
  - Anxiety [Unknown]
  - Constipation [Unknown]
  - Vomiting [Unknown]
  - Nausea [Recovered/Resolved]
  - Malaise [Recovered/Resolved]
  - Dyspnoea [Recovered/Resolved]
  - Dizziness [Recovered/Resolved]

NARRATIVE: CASE EVENT DATE: 20221123
